FAERS Safety Report 7258327-4 (Version None)
Quarter: 2011Q1

REPORT INFORMATION
  Report Type: 
  Country: None (occurrence: None)
  Receive Date: 20110129
  Receipt Date: 20100708
  Transmission Date: 20110831
  Serious: No
  Sender: FDA-Public Use
  Company Number: US-ABBOTT-10P-163-0656210-00

PATIENT
  Age: 62 Year
  Sex: Female

DRUGS (5)
  1. HYDROCODONE BITARTRATE AND ACETAMINOPHEN [Concomitant]
     Indication: PRODUCT USED FOR UNKNOWN INDICATION
     Dosage: 7.5-75MG AS REQUIRED IT VARIES DAY TO DAY HOW OFTEN I TAKE ONE
  2. PRILOSEC OTC [Concomitant]
     Indication: FLATULENCE
     Dosage: FOR A MONTH
  3. HUMIRA [Suspect]
     Indication: RHEUMATOID ARTHRITIS
     Dates: start: 20100322
  4. PRILOSEC OTC [Concomitant]
     Indication: DYSPEPSIA
  5. BENICAR [Concomitant]
     Indication: BLOOD PRESSURE
     Dosage: IN THE MORNING

REACTIONS (1)
  - OROPHARYNGEAL PAIN [None]
